FAERS Safety Report 8318256-1 (Version None)
Quarter: 2012Q2

REPORT INFORMATION
  Report Type: 
  Country: None (occurrence: None)
  Receive Date: 20120425
  Receipt Date: 20120410
  Transmission Date: 20120825
  Serious: Yes (Hospitalization)
  Sender: FDA-Public Use
  Company Number: DSJ-2012-06922

PATIENT
  Age: 60 Year
  Sex: Female

DRUGS (5)
  1. TIBOLONE (TIBOLONE) [Concomitant]
  2. BENICAR [Suspect]
     Indication: HYPERTENSION
     Dosage: 20 MG (20 MG, 1 IN 1 D), PER ORAL
     Route: 048
     Dates: start: 20120206
  3. CALCIUM CARBONATE [Concomitant]
  4. LEVOTHYROXINE SODIUM [Concomitant]
  5. MEDICINE FOR RHEUMATISM [Concomitant]

REACTIONS (1)
  - DIVERTICULITIS [None]
